FAERS Safety Report 9679416 (Version 1)
Quarter: 2013Q4

REPORT INFORMATION
  Report Type: Spontaneous
  Country: US (occurrence: US)
  Receive Date: 20131109
  Receipt Date: 20131109
  Transmission Date: 20140711
  Serious: No
  Sender: FDA-Public Use
  Company Number: US-SANOFI-AVENTIS-2013SA077702

PATIENT
  Age: 74 Year
  Sex: Male

DRUGS (2)
  1. MULTAQ [Suspect]
     Indication: ATRIAL FIBRILLATION
     Route: 048
     Dates: start: 201305
  2. MULTAQ [Suspect]
     Indication: ATRIAL FIBRILLATION
     Dosage: STARTED A COUPLE OF WEEKS AGO
     Route: 048

REACTIONS (1)
  - Arrhythmia [Not Recovered/Not Resolved]
